FAERS Safety Report 5829441-2 (Version None)
Quarter: 2008Q3

REPORT INFORMATION
  Report Type: 
  Country: None (occurrence: None)
  Receive Date: 20080729
  Receipt Date: 20080723
  Transmission Date: 20090109
  Serious: Yes (Life-Threatening)
  Sender: FDA-Public Use
  Company Number: JHP200800195

PATIENT

DRUGS (1)
  1. EPINEPHRINE [Suspect]
     Indication: ANAPHYLACTIC REACTION
     Dosage: 1 MG OF 1 IN 10,000 CONCENTRATION, INTRAVENOUS
     Route: 042

REACTIONS (3)
  - ACCIDENTAL OVERDOSE [None]
  - CARDIAC DISORDER [None]
  - INCORRECT ROUTE OF DRUG ADMINISTRATION [None]
